FAERS Safety Report 24798489 (Version 2)
Quarter: 2025Q1

REPORT INFORMATION
  Report Type: Spontaneous
  Country: DE (occurrence: DE)
  Receive Date: 20250102
  Receipt Date: 20250224
  Transmission Date: 20250409
  Serious: Yes (Hospitalization)
  Sender: Unknown Manufacturer
  Company Number: None

PATIENT
  Age: 18 Year
  Sex: Female
  Weight: 50 kg

DRUGS (2)
  1. AMOXICILLIN [Suspect]
     Active Substance: AMOXICILLIN
     Indication: Wisdom teeth removal
     Dosage: 3X1000MG DAILY
     Route: 048
     Dates: start: 20241206, end: 20241213
  2. IBUPROFEN [Suspect]
     Active Substance: IBUPROFEN
     Indication: Pain
     Dosage: 2X400MG /DAY FOR PAIN AS REQUIRED
     Route: 048
     Dates: start: 20241129, end: 20241213

REACTIONS (10)
  - Skin swelling [Recovering/Resolving]
  - Neuralgia [Recovering/Resolving]
  - Palpitations [Recovered/Resolved]
  - Skin discolouration [Not Recovered/Not Resolved]
  - Pyrexia [Not Recovered/Not Resolved]
  - Apathy [Not Recovered/Not Resolved]
  - Swelling face [Recovering/Resolving]
  - Rash [Not Recovered/Not Resolved]
  - Pruritus [Recovering/Resolving]
  - Drug eruption [Recovering/Resolving]

NARRATIVE: CASE EVENT DATE: 20241213
